FAERS Safety Report 8910129 (Version 1)
Quarter: 2012Q4

REPORT INFORMATION
  Report Type: 
  Country: ES (occurrence: ES)
  Receive Date: 20121115
  Receipt Date: 20121115
  Transmission Date: 20130627
  Serious: Yes (Hospitalization)
  Sender: FDA-Public Use
  Company Number: ES-BRISTOL-MYERS SQUIBB COMPANY-17094079

PATIENT
  Age: 69 Year
  Sex: Male

DRUGS (6)
  1. KARVEZIDE [Suspect]
     Indication: HYPERTENSION
     Route: 048
     Dates: start: 2003, end: 20120524
  2. ALDACTONE [Interacting]
     Indication: HEPATIC CIRRHOSIS
     Route: 048
     Dates: start: 20110701, end: 20120524
  3. ONBREZ [Interacting]
     Indication: RESPIRATORY DISORDER
     Route: 055
     Dates: start: 20120301, end: 20120524
  4. METFORMIN [Concomitant]
     Indication: TYPE 2 DIABETES MELLITUS
     Route: 048
     Dates: start: 2003
  5. FUROSEMIDE [Concomitant]
     Indication: CARDIAC FAILURE
     Route: 048
     Dates: start: 2003
  6. SIMVASTATIN [Concomitant]
     Indication: DYSLIPIDAEMIA
     Route: 048
     Dates: start: 2003

REACTIONS (4)
  - Atrioventricular block complete [Recovered/Resolved]
  - Hyperkalaemia [Recovered/Resolved]
  - Ventricular extrasystoles [Recovered/Resolved]
  - Drug interaction [Unknown]
